FAERS Safety Report 14351316 (Version 3)
Quarter: 2021Q3

REPORT INFORMATION
  Report Type: Report from Study
  Country: CN (occurrence: CN)
  Receive Date: 20180104
  Receipt Date: 20210728
  Transmission Date: 20211014
  Serious: Yes (Hospitalization)
  Sender: FDA-Public Use
  Company Number: CN-PFIZER INC-2017555045

PATIENT
  Age: 61 Year
  Sex: Male
  Weight: 56.8 kg

DRUGS (12)
  1. PLACEBO [Suspect]
     Active Substance: UNSPECIFIED INGREDIENT
     Dosage: EVERY 8 WEEKS
     Route: 058
     Dates: start: 20180208, end: 20180208
  2. PACLITAXEL. [Suspect]
     Active Substance: PACLITAXEL
     Indication: NEOPLASM MALIGNANT
     Dosage: 210 MG, D1
     Route: 041
     Dates: start: 20171225, end: 20171225
  3. 5?FLUOROURACIL /00098801/ [Suspect]
     Active Substance: FLUOROURACIL
     Indication: GASTRIC CANCER
  4. MORPHINE [Concomitant]
     Active Substance: MORPHINE
     Indication: CANCER PAIN
     Dosage: 20 MG, 2X/DAY
     Route: 048
     Dates: start: 20171108
  5. CISPLATIN. [Suspect]
     Active Substance: CISPLATIN
     Indication: GASTRIC CANCER
  6. CALCIUM FOLINATE [Suspect]
     Active Substance: LEUCOVORIN CALCIUM
     Indication: NEOPLASM MALIGNANT
     Dosage: 700 MG, D1
     Route: 041
     Dates: start: 20171225, end: 20171225
  7. 5?FLUOROURACIL /00098801/ [Suspect]
     Active Substance: FLUOROURACIL
     Indication: NEOPLASM MALIGNANT
     Dosage: 3.75 G, CIV 46H
     Route: 042
     Dates: start: 20171225, end: 20171226
  8. DUROGESIC [Concomitant]
     Active Substance: FENTANYL
     Indication: CANCER PAIN
     Dosage: 4.2 MG, 1X/DAY
     Dates: start: 20171010
  9. PACLITAXEL. [Suspect]
     Active Substance: PACLITAXEL
     Indication: GASTRIC CANCER
  10. CISPLATIN. [Suspect]
     Active Substance: CISPLATIN
     Indication: NEOPLASM MALIGNANT
     Dosage: 30 MG, D1?D2
     Route: 041
     Dates: start: 20171225, end: 20171226
  11. PLACEBO [Suspect]
     Active Substance: UNSPECIFIED INGREDIENT
     Indication: CANCER PAIN
     Dosage: EVERY 8 WEEKS
     Route: 058
     Dates: start: 20171212, end: 20171212
  12. CALCIUM FOLINATE [Suspect]
     Active Substance: LEUCOVORIN CALCIUM
     Indication: GASTRIC CANCER

REACTIONS (1)
  - Flatulence [Recovered/Resolved]

NARRATIVE: CASE EVENT DATE: 20171226
